FAERS Safety Report 12471102 (Version 1)
Quarter: 2016Q2

REPORT INFORMATION
  Report Type: Spontaneous
  Country: US (occurrence: None)
  Receive Date: 20160615
  Receipt Date: 20160615
  Transmission Date: 20160815
  Serious: No
  Sender: FDA-Public Use
  Company Number: None

PATIENT
  Age: 53 Year
  Sex: Female

DRUGS (1)
  1. AMPYRA [Suspect]
     Active Substance: DALFAMPRIDINE
     Indication: MULTIPLE SCLEROSIS
     Route: 048
     Dates: start: 20100728

REACTIONS (6)
  - Red blood cell count abnormal [None]
  - Haemoglobin abnormal [None]
  - Low density lipoprotein abnormal [None]
  - White blood cell count abnormal [None]
  - Haematocrit abnormal [None]
  - Lymphocyte count abnormal [None]

NARRATIVE: CASE EVENT DATE: 20160506
